FAERS Safety Report 11489454 (Version 1)
Quarter: 2015Q3

REPORT INFORMATION
  Report Type: Spontaneous
  Country: US (occurrence: US)
  Receive Date: 20150910
  Receipt Date: 20150910
  Transmission Date: 20151125
  Serious: No
  Sender: FDA-Public Use
  Company Number: US-ROCHE-1444629

PATIENT
  Sex: Male

DRUGS (5)
  1. SOVALDI [Concomitant]
     Active Substance: SOFOSBUVIR
     Indication: HEPATITIS C
     Route: 048
     Dates: start: 20140718
  2. ABILIFY [Concomitant]
     Active Substance: ARIPIPRAZOLE
  3. PEGASYS [Suspect]
     Active Substance: PEGINTERFERON ALFA-2A
     Indication: HEPATITIS C
     Route: 058
     Dates: start: 20140718
  4. RIBASPHERE [Concomitant]
     Active Substance: RIBAVIRIN
     Route: 048
     Dates: start: 20140717
  5. RIBASPHERE [Concomitant]
     Active Substance: RIBAVIRIN
     Indication: HEPATITIS C
     Dosage: 3BID
     Route: 048

REACTIONS (3)
  - Overdose [Unknown]
  - Abasia [Recovered/Resolved]
  - Tremor [Recovered/Resolved]
